FAERS Safety Report 12851866 (Version 2)
Quarter: 2016Q4

REPORT INFORMATION
  Report Type: Report from Study
  Country: BE (occurrence: BE)
  Receive Date: 20161017
  Receipt Date: 20161128
  Transmission Date: 20170207
  Serious: Yes (Hospitalization)
  Sender: FDA-Public Use
  Company Number: BE-CELGENEUS-BEL-2016087776

PATIENT
  Age: 67 Year
  Sex: Male
  Weight: 88 kg

DRUGS (15)
  1. TEMESTA [Concomitant]
     Active Substance: LORAZEPAM
     Indication: VOMITING
  2. METFORMIN [Concomitant]
     Active Substance: METFORMIN HYDROCHLORIDE
     Indication: DIABETES MELLITUS
     Dosage: 850 MG
     Route: 048
     Dates: start: 201508
  3. GEMCITABINE [Suspect]
     Active Substance: GEMCITABINE\GEMCITABINE HYDROCHLORIDE
     Indication: PANCREATIC CARCINOMA
     Dosage: 1973.75 MG
     Route: 041
     Dates: start: 20150909, end: 20160817
  4. GLURENORM [Concomitant]
     Indication: PRODUCT USED FOR UNKNOWN INDICATION
     Dosage: 30 MG
     Route: 048
     Dates: start: 201508
  5. MAGNETOP [Concomitant]
     Indication: FATIGUE
     Dosage: 1 UNIT
     Route: 048
     Dates: start: 20151209
  6. TEMESTA [Concomitant]
     Active Substance: LORAZEPAM
     Indication: NAUSEA
     Dosage: 1 MG
     Route: 048
     Dates: start: 20151008, end: 20160821
  7. ABRAXANE [Suspect]
     Active Substance: PACLITAXEL
     Dosage: 246.72 MG
     Route: 041
     Dates: start: 20160902
  8. PANTOMED [Concomitant]
     Active Substance: DEXPANTHENOL
     Indication: PROPHYLAXIS
     Dosage: 40 MG
     Route: 048
     Dates: start: 201508
  9. INDERAL [Concomitant]
     Active Substance: PROPRANOLOL HYDROCHLORIDE
     Indication: HYPERTENSION
     Dosage: 20 MG
     Route: 048
     Dates: start: 20151014
  10. CREON [Concomitant]
     Active Substance: PANCRELIPASE AMYLASE\PANCRELIPASE LIPASE\PANCRELIPASE PROTEASE
     Indication: PROPHYLAXIS AGAINST DIARRHOEA
     Dosage: 1 TABLET
     Route: 048
     Dates: start: 20160608
  11. CLEXANE [Concomitant]
     Active Substance: ENOXAPARIN SODIUM
     Indication: PULMONARY EMBOLISM
     Dosage: 120 MG
     Route: 058
     Dates: start: 20160809
  12. GEMCITABINE [Suspect]
     Active Substance: GEMCITABINE\GEMCITABINE HYDROCHLORIDE
     Dosage: 1973.75 MG
     Route: 041
     Dates: start: 20160902
  13. COLCHICINE. [Concomitant]
     Active Substance: COLCHICINE
     Indication: GOUT
     Dosage: 1 MG
     Route: 048
     Dates: start: 20160826, end: 20160828
  14. ABRAXANE [Suspect]
     Active Substance: PACLITAXEL
     Indication: PANCREATIC CARCINOMA
     Dosage: 246.72 MG
     Route: 041
     Dates: start: 20150909, end: 20160817
  15. NEUPOGEN [Concomitant]
     Active Substance: FILGRASTIM
     Indication: NEUTROPENIA
     Dosage: 480 MICROGRAM
     Route: 058
     Dates: start: 20160727

REACTIONS (1)
  - Bile duct stenosis [Recovered/Resolved]

NARRATIVE: CASE EVENT DATE: 20160820
